FAERS Safety Report 4787656-9 (Version None)
Quarter: 2005Q3

REPORT INFORMATION
  Report Type: 
  Country: None (occurrence: None)
  Receive Date: 20050914
  Receipt Date: 20050125
  Transmission Date: 20060218
  Serious: Yes (Life-Threatening, Hospitalization)
  Sender: FDA-Public Use
  Company Number: 163-20785-05010475 (0)

PATIENT
  Age: 42 Year
  Sex: Female

DRUGS (3)
  1. THALOMID [Suspect]
     Indication: ADENOID CYSTIC CARCINOMA
     Dosage: SEE IMAGE
     Route: 048
     Dates: start: 20041015, end: 20041116
  2. THALOMID [Suspect]
     Indication: ADENOID CYSTIC CARCINOMA
     Dosage: SEE IMAGE
     Route: 048
     Dates: start: 20041117, end: 20041220
  3. THALOMID [Suspect]
     Indication: ADENOID CYSTIC CARCINOMA
     Dosage: SEE IMAGE
     Route: 048
     Dates: start: 20041220

REACTIONS (1)
  - PULMONARY EMBOLISM [None]
